FAERS Safety Report 9290146 (Version 2)
Quarter: 2013Q2

REPORT INFORMATION
  Report Type: Spontaneous
  Country: GB (occurrence: GB)
  Receive Date: 20130515
  Receipt Date: 20130524
  Transmission Date: 20140414
  Serious: Yes (Other)
  Sender: FDA-Public Use
  Company Number: GB-PFIZER INC-2013147458

PATIENT
  Age: 81 Year
  Sex: Female

DRUGS (3)
  1. LYRICA [Suspect]
     Indication: NEURALGIA
     Dosage: 75 MG, 2X/DAY
     Dates: start: 20130107
  2. LYRICA [Suspect]
     Indication: SPINAL OPERATION
     Dosage: 75 MG, 1X/DAY
     Dates: start: 2013, end: 2013
  3. LYRICA [Suspect]
     Indication: SPINAL DECOMPRESSION

REACTIONS (9)
  - Visual impairment [Recovering/Resolving]
  - Loss of consciousness [Unknown]
  - Diabetes mellitus [Unknown]
  - Fall [Unknown]
  - Hip fracture [Unknown]
  - Mental impairment [Unknown]
  - Amnesia [Unknown]
  - Dizziness [Unknown]
  - Constipation [Unknown]
